FAERS Safety Report 5389559-8 (Version None)
Quarter: 2007Q3

REPORT INFORMATION
  Report Type: 
  Country: None (occurrence: None)
  Receive Date: 20070717
  Receipt Date: 20070716
  Transmission Date: 20080115
  Serious: Yes (Life-Threatening, Other)
  Sender: FDA-Public Use
  Company Number: US-BRISTOL-MYERS SQUIBB COMPANY-13847090

PATIENT
  Age: 54 Year
  Sex: Male
  Weight: 107 kg

DRUGS (6)
  1. DEFINITY [Suspect]
     Indication: STRESS ECHOCARDIOGRAM
     Route: 042
     Dates: start: 20070712
  2. ALLEGRA [Concomitant]
  3. NASONEX [Concomitant]
  4. DAYPRO [Concomitant]
  5. NEXIUM [Concomitant]
  6. ASPIRIN [Concomitant]

REACTIONS (3)
  - BACK PAIN [None]
  - CARDIAC ARREST [None]
  - LOSS OF CONSCIOUSNESS [None]
